FAERS Safety Report 13980997 (Version 1)
Quarter: 2017Q3

REPORT INFORMATION
  Report Type: Spontaneous
  Country: US (occurrence: None)
  Receive Date: 20170915
  Receipt Date: 20170915
  Transmission Date: 20171128
  Serious: Yes (Hospitalization)
  Sender: FDA-Public Use
  Company Number: None

PATIENT
  Age: 59 Year
  Sex: Male

DRUGS (5)
  1. MIDAZOLAM [Suspect]
     Active Substance: MIDAZOLAM HYDROCHLORIDE
     Indication: AGITATION
     Route: 030
     Dates: start: 20170729, end: 20170731
  2. HALOPERIDOL. [Concomitant]
     Active Substance: HALOPERIDOL
  3. LORAZEPAM. [Concomitant]
     Active Substance: LORAZEPAM
  4. LORAZAPAM [Suspect]
     Active Substance: LORAZEPAM
     Route: 042
  5. MIDAZOLAM [Concomitant]
     Active Substance: MIDAZOLAM HYDROCHLORIDE

REACTIONS (12)
  - Agitation [None]
  - Impulsive behaviour [None]
  - Respiratory failure [None]
  - Delusion of grandeur [None]
  - Hypoventilation [None]
  - Pneumonia aspiration [None]
  - Aggression [None]
  - Hypoxia [None]
  - Atelectasis [None]
  - Tachyphrenia [None]
  - Sedation complication [None]
  - Speech disorder [None]

NARRATIVE: CASE EVENT DATE: 20170730
